FAERS Safety Report 9250395 (Version 2)
Quarter: 2013Q2

REPORT INFORMATION
  Report Type: Spontaneous
  Country: US (occurrence: US)
  Receive Date: 20130424
  Receipt Date: 20130514
  Transmission Date: 20140414
  Serious: No
  Sender: FDA-Public Use
  Company Number: US-009507513-1304USA013633

PATIENT
  Sex: Female

DRUGS (1)
  1. PROVENTIL [Suspect]
     Dosage: UNK
     Route: 055
     Dates: start: 20130411

REACTIONS (7)
  - Back pain [Unknown]
  - Fracture [Unknown]
  - Road traffic accident [Unknown]
  - Underdose [Unknown]
  - Product container issue [Unknown]
  - Gait disturbance [Unknown]
  - Renal disorder [Unknown]
